FAERS Safety Report 20364457 (Version 2)
Quarter: 2022Q1

REPORT INFORMATION
  Report Type: Spontaneous
  Country: SK (occurrence: None)
  Receive Date: 20220121
  Receipt Date: 20220321
  Transmission Date: 20220423
  Serious: Yes (Other)
  Sender: FDA-Public Use
  Company Number: SK-ROCHE-2983623

PATIENT
  Age: 29 Year
  Sex: Female

DRUGS (3)
  1. ALECENSA [Suspect]
     Active Substance: ALECTINIB HYDROCHLORIDE
     Indication: Lung adenocarcinoma
     Route: 048
     Dates: start: 202012, end: 202111
  2. FENOFIBRATE [Concomitant]
     Active Substance: FENOFIBRATE
  3. LORLATINIB [Concomitant]
     Active Substance: LORLATINIB

REACTIONS (5)
  - Lipids increased [Unknown]
  - Disease progression [Unknown]
  - Metastases to bone [Unknown]
  - Cholelithiasis [Unknown]
  - Abdominal pain [Unknown]

NARRATIVE: CASE EVENT DATE: 20211101
